FAERS Safety Report 8827095 (Version 1)
Quarter: 2012Q4

REPORT INFORMATION
  Report Type: Report from Study
  Country: US (occurrence: US)
  Receive Date: 20121005
  Receipt Date: 20121005
  Transmission Date: 20130627
  Serious: Yes (Other)
  Sender: FDA-Public Use
  Company Number: US-JNJFOC-20121000406

PATIENT
  Sex: Female

DRUGS (13)
  1. XARELTO [Suspect]
     Indication: CEREBROVASCULAR ACCIDENT PROPHYLAXIS
     Route: 048
  2. XARELTO [Suspect]
     Indication: ATRIAL FIBRILLATION
     Route: 048
  3. TREPROSTINIL [Interacting]
     Indication: PRODUCT USED FOR UNKNOWN INDICATION
  4. DOBUTAMINE [Concomitant]
  5. LASIX [Concomitant]
  6. ZOFRAN [Concomitant]
  7. AMIODARONE [Concomitant]
  8. ZOLPIDEM [Concomitant]
  9. SPIRONOLACTONE [Concomitant]
  10. MORPHINE [Concomitant]
  11. HYDROCODONE [Concomitant]
  12. IRON [Concomitant]
  13. PANTOPRAZOLE [Concomitant]

REACTIONS (2)
  - Catheter site haemorrhage [Unknown]
  - Drug interaction [Unknown]
